FAERS Safety Report 11596250 (Version 6)
Quarter: 2019Q2

REPORT INFORMATION
  Report Type: Report from Study
  Country: CA (occurrence: CA)
  Receive Date: 20151006
  Receipt Date: 20190619
  Transmission Date: 20190711
  Serious: Yes (Other)
  Sender: FDA-Public Use
  Company Number: CA-ROCHE-ITM201505IM016690

PATIENT
  Age: 74 Year
  Sex: Male
  Weight: 65.9 kg

DRUGS (18)
  1. ASCORBIC ACID. [Concomitant]
     Active Substance: ASCORBIC ACID
  2. ESBRIET [Suspect]
     Active Substance: PIRFENIDONE
     Indication: IDIOPATHIC PULMONARY FIBROSIS
     Route: 048
     Dates: start: 201903
  3. ESBRIET [Suspect]
     Active Substance: PIRFENIDONE
     Route: 048
     Dates: start: 201502
  4. CLOPIDOGREL [Concomitant]
     Active Substance: CLOPIDOGREL BISULFATE
  5. PANTOPRAZOLE [Concomitant]
     Active Substance: PANTOPRAZOLE
  6. CRESTOR [Concomitant]
     Active Substance: ROSUVASTATIN CALCIUM
  7. SERRAPEPTASE [Concomitant]
     Active Substance: SERRAPEPTASE
  8. ESBRIET [Suspect]
     Active Substance: PIRFENIDONE
     Indication: IDIOPATHIC PULMONARY FIBROSIS
     Route: 048
     Dates: start: 20150428
  9. ESBRIET [Suspect]
     Active Substance: PIRFENIDONE
     Route: 048
     Dates: start: 20150505
  10. IRBESARTAN. [Concomitant]
     Active Substance: IRBESARTAN
  11. COTYLENOL [Concomitant]
  12. ESTER-C [CALCIUM ASCORBATE] [Concomitant]
     Active Substance: CALCIUM ASCORBATE
  13. ESBRIET [Suspect]
     Active Substance: PIRFENIDONE
     Route: 048
     Dates: start: 20150512, end: 201507
  14. ESBRIET [Suspect]
     Active Substance: PIRFENIDONE
     Route: 048
     Dates: start: 20190307, end: 201903
  15. CLONAZEPAM. [Suspect]
     Active Substance: CLONAZEPAM
     Indication: PRODUCT USED FOR UNKNOWN INDICATION
     Route: 065
  16. TECTA [Concomitant]
     Active Substance: PANTOPRAZOLE MAGNESIUM
  17. COENZYME Q10 [Concomitant]
     Active Substance: UBIDECARENONE
  18. ESBRIET [Suspect]
     Active Substance: PIRFENIDONE
     Route: 048
     Dates: start: 20150714, end: 201508

REACTIONS (18)
  - Decreased appetite [Recovered/Resolved]
  - Gastric disorder [Unknown]
  - Malaise [Unknown]
  - Foreign body in respiratory tract [Not Recovered/Not Resolved]
  - Depression [Unknown]
  - Cough [Recovering/Resolving]
  - Flatulence [Not Recovered/Not Resolved]
  - Dyspnoea [Unknown]
  - Dyspepsia [Not Recovered/Not Resolved]
  - Throat irritation [Unknown]
  - Asthenia [Unknown]
  - Dizziness [Not Recovered/Not Resolved]
  - Warm type haemolytic anaemia [Not Recovered/Not Resolved]
  - Pulmonary fibrosis [Unknown]
  - Blood pressure decreased [Recovering/Resolving]
  - Productive cough [Unknown]
  - Weight decreased [Unknown]
  - Abdominal discomfort [Unknown]

NARRATIVE: CASE EVENT DATE: 20150522
